FAERS Safety Report 9702130 (Version 1)
Quarter: 2013Q4

REPORT INFORMATION
  Report Type: Spontaneous
  Country: IT (occurrence: IT)
  Receive Date: 20131121
  Receipt Date: 20131121
  Transmission Date: 20140711
  Serious: Yes (Life-Threatening)
  Sender: FDA-Public Use
  Company Number: IT-TEVA-444665ISR

PATIENT
  Age: 76 Year
  Sex: Male

DRUGS (8)
  1. CLOPIDOGREL TEVA 75MG [Suspect]
     Indication: PLATELET AGGREGATION INHIBITION
     Dosage: 75 MILLIGRAM DAILY;
     Route: 048
     Dates: end: 20131102
  2. CARDIOASPIRIN 100 MG [Suspect]
     Indication: PLATELET AGGREGATION INHIBITION
     Dosage: 100 MILLIGRAM DAILY; GASTRORESISTANT TABLET
     Route: 048
     Dates: end: 20131102
  3. SIMVASTATINA ABC 20 MG [Concomitant]
  4. LISINOPRIL ACTAVIS 20 MG [Concomitant]
  5. PANTOPRAZOLO ACTAVIS 20 MG [Concomitant]
     Dosage: GASTRORESISTANT TABLET
  6. GALTES 80 MG [Concomitant]
  7. ONBREZ BREEZHALER [Concomitant]
  8. SPIRIVA [Concomitant]

REACTIONS (2)
  - Cerebral haemorrhage [Unknown]
  - Coma [Unknown]
